FAERS Safety Report 7474751-9 (Version None)
Quarter: 2011Q2

REPORT INFORMATION
  Report Type: 
  Country: None (occurrence: None)
  Receive Date: 20110505
  Receipt Date: 20110421
  Transmission Date: 20111010
  Serious: Yes (Hospitalization)
  Sender: FDA-Public Use
  Company Number: 014653

PATIENT
  Sex: Female

DRUGS (20)
  1. SOFALCONE [Concomitant]
  2. CARBAMAZEPINE [Concomitant]
  3. MECOBALAMIN [Concomitant]
  4. METHOTREXATE [Concomitant]
  5. ATORVASTATIN CALCIUM [Concomitant]
  6. BERAPROST SODIUM [Concomitant]
  7. MELOXICAM [Concomitant]
  8. CIMZIA [Suspect]
     Indication: RHEUMATOID ARTHRITIS
     Dosage: 200 MG C870-041, 400 ,G 1X/MONTH SUBCUTANEOUS
     Route: 058
     Dates: start: 20090416
  9. FERROUS SULFATE TAB [Concomitant]
  10. LITHIUM CARBONATE [Concomitant]
  11. MILNACIPRAN HYDROCHLORIDE [Concomitant]
  12. SULPIRIDE [Concomitant]
  13. ETIZOLAM [Concomitant]
  14. ADONIS VERNALIS EXTRACT [Concomitant]
  15. TRIAZOLAM [Concomitant]
  16. SENNOSIDE [Concomitant]
  17. FOLIC ACID [Concomitant]
  18. SERTRALINE HYDROCHLORIDE [Concomitant]
  19. IMIDAPRIL HYDROCHLORIDE [Concomitant]
  20. KETOPROFEN [Concomitant]

REACTIONS (9)
  - CONDITION AGGRAVATED [None]
  - SOMATOFORM DISORDER [None]
  - DEMENTIA [None]
  - THERAPY REGIMEN CHANGED [None]
  - RHEUMATOID ARTHRITIS [None]
  - ABNORMAL BEHAVIOUR [None]
  - SPEECH DISORDER [None]
  - MENTAL IMPAIRMENT [None]
  - APATHY [None]
